FAERS Safety Report 7149298-X (Version None)
Quarter: 2010Q4

REPORT INFORMATION
  Report Type: 
  Country: None (occurrence: None)
  Receive Date: 20101209
  Receipt Date: 20101130
  Transmission Date: 20110411
  Serious: Yes (Other)
  Sender: FDA-Public Use
  Company Number: GB-ASTRAZENECA-2010SE56767

PATIENT
  Age: 46 Year
  Sex: Female

DRUGS (2)
  1. SEROQUEL XR [Suspect]
     Indication: BIPOLAR DISORDER
     Route: 048
     Dates: start: 20101105
  2. SEROQUEL XR [Suspect]
     Route: 048
     Dates: end: 20101113

REACTIONS (4)
  - DRY THROAT [None]
  - DYSPNOEA [None]
  - SENSATION OF PRESSURE [None]
  - TACHYCARDIA [None]
